FAERS Safety Report 13357429 (Version 1)
Quarter: 2017Q1

REPORT INFORMATION
  Report Type: Spontaneous
  Country: US (occurrence: US)
  Receive Date: 20170322
  Receipt Date: 20170322
  Transmission Date: 20170429
  Serious: No
  Sender: FDA-Public Use
  Company Number: US-ENDO PHARMACEUTICALS INC-2017-000034

PATIENT
  Sex: Male
  Weight: 77.18 kg

DRUGS (4)
  1. LISINOPRIL TABLETS [Concomitant]
     Active Substance: LISINOPRIL
     Indication: HYPERTENSION
  2. OXYCODONE HYDROCHLORIDE. [Suspect]
     Active Substance: OXYCODONE HYDROCHLORIDE
     Indication: BACK PAIN
     Route: 065
     Dates: start: 2011
  3. METOPROLOL ER [Concomitant]
     Active Substance: METOPROLOL SUCCINATE
     Indication: HYPERTENSION
  4. AMLODIPINE [Concomitant]
     Active Substance: AMLODIPINE BESYLATE
     Indication: HYPERTENSION

REACTIONS (1)
  - Feeling jittery [Unknown]

NARRATIVE: CASE EVENT DATE: 2011
